FAERS Safety Report 21408704 (Version 2)
Quarter: 2022Q4

REPORT INFORMATION
  Report Type: Spontaneous
  Country: CN (occurrence: CN)
  Receive Date: 20221004
  Receipt Date: 20221202
  Transmission Date: 20230113
  Serious: Yes (Other)
  Sender: FDA-Public Use
  Company Number: CN-PADAGIS-2022PAD00744

PATIENT

DRUGS (2)
  1. MESALAMINE [Suspect]
     Active Substance: MESALAMINE
     Indication: Colitis ulcerative
     Dosage: UNK
     Route: 048
  2. MESALAMINE [Suspect]
     Active Substance: MESALAMINE
     Dosage: UNK (ENEMA)
     Route: 050

REACTIONS (1)
  - Drug ineffective [Unknown]
